FAERS Safety Report 9537097 (Version 4)
Quarter: 2013Q4

REPORT INFORMATION
  Report Type: Report from Study
  Country: CA (occurrence: CA)
  Receive Date: 20130919
  Receipt Date: 20131213
  Transmission Date: 20140711
  Serious: Yes (Death, Hospitalization, Other)
  Sender: FDA-Public Use
  Company Number: PHHY2013CA013857

PATIENT
  Age: 61 Year
  Sex: Male

DRUGS (2)
  1. SANDOSTATIN LAR [Suspect]
     Indication: NEUROENDOCRINE TUMOUR
     Dosage: 30 MG, EVERY 4 WEEKS
     Route: 030
     Dates: start: 20120817
  2. SANDOSTATIN LAR [Suspect]
     Dosage: 30 MG, EVERY FOUR WEEKS
     Route: 030
     Dates: end: 20130820

REACTIONS (9)
  - Malignant neoplasm progression [Fatal]
  - Confusional state [Unknown]
  - Ascites [Unknown]
  - Blood bilirubin increased [Unknown]
  - Weight decreased [Recovering/Resolving]
  - General physical health deterioration [Unknown]
  - Diarrhoea [Recovering/Resolving]
  - Frequent bowel movements [Recovering/Resolving]
  - Abdominal distension [Recovering/Resolving]
